FAERS Safety Report 9618722 (Version 3)
Quarter: 2013Q4

REPORT INFORMATION
  Report Type: Spontaneous
  Country: CA (occurrence: CA)
  Receive Date: 20131014
  Receipt Date: 20131209
  Transmission Date: 20140711
  Serious: Yes (Other)
  Sender: FDA-Public Use
  Company Number: CA-SA-2013SA102401

PATIENT
  Age: 38 Year
  Sex: Female
  Weight: 55.4 kg

DRUGS (21)
  1. FABRAZYME [Suspect]
     Indication: FABRY^S DISEASE
     Route: 042
     Dates: start: 20120512
  2. FABRAZYME [Suspect]
     Indication: FABRY^S DISEASE
     Route: 042
     Dates: start: 20120512
  3. FABRAZYME [Suspect]
     Indication: FABRY^S DISEASE
     Route: 042
     Dates: start: 20130925
  4. FABRAZYME [Suspect]
     Indication: FABRY^S DISEASE
     Route: 042
  5. ACETYLSALICYLIC ACID [Concomitant]
     Indication: CARDIOVASCULAR EVENT PROPHYLAXIS
     Dates: start: 20130922
  6. VITAMIN D [Concomitant]
     Indication: PARATHYROIDECTOMY
     Dosage: DOSE:400 UNIT(S)
     Dates: start: 20130621
  7. PROGRAF [Concomitant]
     Indication: RENAL TRANSPLANT
     Dates: start: 20130827
  8. SULFAMETHOXAZOLE/TRIMETHOPRIM [Concomitant]
     Dosage: 160-800 G
     Dates: start: 20130607
  9. RISEDRONATE SODIUM [Concomitant]
     Indication: PARATHYROIDECTOMY
     Dates: start: 20130604
  10. PANTOPRAZOLE [Concomitant]
     Indication: GASTRITIS
     Dates: start: 20000713
  11. MYFORTIC [Concomitant]
     Indication: RENAL TRANSPLANT
     Dates: start: 20130827
  12. FUROSEMIDE [Concomitant]
     Dates: start: 20130827
  13. ATORVASTATIN [Concomitant]
     Indication: DYSLIPIDAEMIA
     Dates: start: 20130925
  14. ACETAMINOPHEN [Concomitant]
     Indication: PREMEDICATION
     Dates: start: 201307
  15. PREDNISONE [Concomitant]
     Indication: RENAL TRANSPLANT
     Dates: start: 20130712
  16. LIDOCAINE/PRILOCAINE [Concomitant]
     Dates: start: 20130703
  17. HYDROXYZINE [Concomitant]
     Indication: PRURITUS
     Dates: start: 20120211
  18. SENNOSIDES A AND B [Concomitant]
     Indication: CONSTIPATION
     Dates: start: 20120607
  19. RANITIDINE [Concomitant]
     Indication: GASTROOESOPHAGEAL REFLUX PROPHYLAXIS
     Dosage: HALF TABLET, PRN
     Dates: start: 20130609
  20. DOCUSATE SODIUM [Concomitant]
     Indication: CONSTIPATION
     Dates: start: 20130607
  21. CALCIUM CARBONATE [Concomitant]
     Indication: PARATHYROIDECTOMY
     Dates: start: 20130621

REACTIONS (8)
  - Transient ischaemic attack [Recovered/Resolved]
  - Headache [Recovered/Resolved]
  - Aphasia [Recovered/Resolved]
  - Disturbance in attention [Recovered/Resolved]
  - Amnesia [Recovered/Resolved]
  - Paralysis [Unknown]
  - Migraine [Unknown]
  - Visual impairment [Unknown]
